FAERS Safety Report 5133965-3 (Version None)
Quarter: 2006Q4

REPORT INFORMATION
  Report Type: 
  Country: None (occurrence: None)
  Receive Date: 20061019
  Receipt Date: 20061002
  Transmission Date: 20070319
  Serious: Yes (Disabling)
  Sender: FDA-Public Use
  Company Number: S06-ITA-04319-01

PATIENT
  Age: 83 Year
  Sex: Female

DRUGS (8)
  1. EBIXA (MEMANTINE) [Suspect]
     Indication: DEMENTIA ALZHEIMER'S TYPE
     Dosage: 10 MG BID PO
     Route: 048
     Dates: start: 20060827, end: 20060903
  2. EBIXA (MEMANTINE) [Suspect]
     Indication: DEMENTIA ALZHEIMER'S TYPE
     Dates: start: 20060806, end: 20060826
  3. VERAPAMIL [Concomitant]
  4. CARDIRENE (ACETYLSALICYLATE LYSINE) [Concomitant]
  5. MULTICENTRUM (MULTIVITAMIN AND MINERAL) [Concomitant]
  6. B VITAMINE COMPLEX (VITAMIN B) [Concomitant]
  7. EPHYNAL 300 (TOCOPHERYL ACETATE) [Concomitant]
  8. EPARGRISEOVIT [Concomitant]

REACTIONS (5)
  - ALANINE AMINOTRANSFERASE INCREASED [None]
  - ASPARTATE AMINOTRANSFERASE INCREASED [None]
  - GAMMA-GLUTAMYLTRANSFERASE INCREASED [None]
  - OPHTHALMOPLEGIA [None]
  - STRABISMUS [None]
